FAERS Safety Report 6833954-4 (Version None)
Quarter: 2010Q3

REPORT INFORMATION
  Report Type: 
  Country: None (occurrence: None)
  Receive Date: 20100712
  Receipt Date: 20070406
  Transmission Date: 20110219
  Serious: No
  Sender: FDA-Public Use
  Company Number: US-PFIZER INC-2007028585

PATIENT

DRUGS (4)
  1. CHANTIX [Suspect]
     Dates: start: 20070405
  2. SEROQUEL [Concomitant]
  3. PROCARDIA [Concomitant]
  4. CLARITIN [Concomitant]

REACTIONS (1)
  - TREMOR [None]
